FAERS Safety Report 25484566 (Version 1)
Quarter: 2025Q2

REPORT INFORMATION
  Report Type: Spontaneous
  Country: US (occurrence: None)
  Receive Date: 20250627
  Receipt Date: 20250627
  Transmission Date: 20250717
  Serious: Yes (Death)
  Sender: FDA-CTU
  Company Number: None

PATIENT
  Age: 89 Year
  Sex: Male

DRUGS (8)
  1. REPATHA [Suspect]
     Active Substance: EVOLOCUMAB
     Indication: Hyperlipidaemia
     Dosage: 140 MG/ML EVERY 2 WEEKS SUBCUTANEOUS
     Route: 058
     Dates: start: 20240318, end: 20250530
  2. FUROSEMIDE [Concomitant]
     Active Substance: FUROSEMIDE
  3. PREGABALIN [Concomitant]
     Active Substance: PREGABALIN
  4. BYSTOLIC [Concomitant]
     Active Substance: NEBIVOLOL HYDROCHLORIDE
  5. EXFORGE [Concomitant]
     Active Substance: AMLODIPINE BESYLATE\VALSARTAN
  6. FINASTERIDE [Concomitant]
     Active Substance: FINASTERIDE
  7. RANEXA [Concomitant]
     Active Substance: RANOLAZINE
  8. XARELTO [Concomitant]
     Active Substance: RIVAROXABAN

REACTIONS (1)
  - Death [None]

NARRATIVE: CASE EVENT DATE: 20250530
